FAERS Safety Report 8799024 (Version 1)
Quarter: 2012Q4

REPORT INFORMATION
  Report Type: Spontaneous
  Country: US (occurrence: None)
  Receive Date: 20120918
  Receipt Date: 20120918
  Transmission Date: 20130627
  Serious: Yes (Other)
  Sender: FDA-Public Use
  Company Number: None

PATIENT
  Sex: Male
  Weight: 72.58 kg

DRUGS (1)
  1. SINGULAIR 10MG FILM TABLETS [Suspect]

REACTIONS (2)
  - Product substitution issue [None]
  - Memory impairment [None]
